FAERS Safety Report 12397911 (Version 1)
Quarter: 2016Q2

REPORT INFORMATION
  Report Type: Spontaneous
  Country: US (occurrence: None)
  Receive Date: 20160523
  Receipt Date: 20160523
  Transmission Date: 20160815
  Serious: No
  Sender: FDA-Public Use
  Company Number: None

PATIENT
  Age: 61 Year
  Sex: Female

DRUGS (9)
  1. LORAZAPAM [Concomitant]
     Active Substance: LORAZEPAM
  2. ONDANSETRON [Concomitant]
     Active Substance: ONDANSETRON
  3. TACROLIMUS. [Concomitant]
     Active Substance: TACROLIMUS
  4. CASPOFUNGIN [Concomitant]
     Active Substance: CASPOFUNGIN
  5. METHOTREXATE [Suspect]
     Active Substance: METHOTREXATE
     Indication: PROPHYLAXIS AGAINST GRAFT VERSUS HOST DISEASE
     Route: 042
     Dates: start: 20160328
  6. BORTEZOMIB [Concomitant]
     Active Substance: BORTEZOMIB
  7. ISONIAZID. [Concomitant]
     Active Substance: ISONIAZID
  8. ACYCLOVIR. [Concomitant]
     Active Substance: ACYCLOVIR
  9. LEVOFLOXACIN. [Concomitant]
     Active Substance: LEVOFLOXACIN

REACTIONS (4)
  - Toxicity to various agents [None]
  - Mouth ulceration [None]
  - Stomatitis [None]
  - Mucosal inflammation [None]

NARRATIVE: CASE EVENT DATE: 20160327
